FAERS Safety Report 12922883 (Version 1)
Quarter: 2016Q4

REPORT INFORMATION
  Report Type: Spontaneous
  Country: US (occurrence: US)
  Receive Date: 20161109
  Receipt Date: 20161109
  Transmission Date: 20170207
  Serious: Yes (Other)
  Sender: FDA-Public Use
  Company Number: US-BRISTOL-MYERS SQUIBB COMPANY-BMS-2016-092556

PATIENT
  Sex: Male

DRUGS (1)
  1. OPDIVO [Suspect]
     Active Substance: NIVOLUMAB
     Indication: LUNG NEOPLASM MALIGNANT
     Route: 042

REACTIONS (11)
  - Diarrhoea [Unknown]
  - Malignant neoplasm progression [Unknown]
  - Headache [Unknown]
  - Sleep talking [Unknown]
  - Decreased appetite [Unknown]
  - Mineral supplementation [Unknown]
  - Confusional state [Unknown]
  - Mood altered [Unknown]
  - Memory impairment [Unknown]
  - Hallucination, visual [Unknown]
  - Fatigue [Unknown]
